FAERS Safety Report 11628067 (Version 1)
Quarter: 2015Q4

REPORT INFORMATION
  Report Type: Spontaneous
  Country: US (occurrence: None)
  Receive Date: 20151009
  Receipt Date: 20151009
  Transmission Date: 20160304
  Serious: No
  Sender: FDA-Public Use
  Company Number: 15AE048

PATIENT
  Sex: Male

DRUGS (4)
  1. MIRTAZAPINE MIRPAX [Concomitant]
  2. CARBIDOPA. [Concomitant]
     Active Substance: CARBIDOPA
  3. EQUATE SLEEP AID [Suspect]
     Active Substance: DOXYLAMINE SUCCINATE
     Indication: INITIAL INSOMNIA
     Dosage: AT NIGHT
  4. SUPHEDRINE PE [Concomitant]
     Active Substance: ACETAMINOPHEN\CHLORPHENIRAMINE MALEATE\DIPHENHYDRAMINE HYDROCHLORIDE\PHENYLEPHRINE HYDROCHLORIDE

REACTIONS (2)
  - Middle insomnia [None]
  - Sleep disorder [None]

NARRATIVE: CASE EVENT DATE: 20150909
